FAERS Safety Report 8992115 (Version 2)
Quarter: 2013Q2

REPORT INFORMATION
  Report Type: Spontaneous
  Country: GB (occurrence: GB)
  Receive Date: 20121231
  Receipt Date: 20130528
  Transmission Date: 20140414
  Serious: Yes (Other)
  Sender: FDA-Public Use
  Company Number: GB-BANPHARM-20120488

PATIENT
  Age: 29 Year
  Sex: Male

DRUGS (3)
  1. BROFEN (IBUPROFEN) [Suspect]
     Indication: ILL-DEFINED DISORDER
     Dosage: 800 MG, BID,
     Route: 048
     Dates: start: 20040916
  2. CLOZAPINE [Suspect]
     Indication: ILL-DEFINED DISORDER
     Dosage: 325 MG, QD,
     Route: 048
     Dates: start: 2000, end: 20041002
  3. PROCYCLIDINE [Concomitant]
     Dosage: 5 MG, 1 DF, QD,
     Route: 048

REACTIONS (1)
  - Neutropenia [Recovered/Resolved]
